FAERS Safety Report 4366539-2 (Version None)
Quarter: 2004Q2

REPORT INFORMATION
  Report Type: 
  Country: None (occurrence: None)
  Receive Date: 20040527
  Receipt Date: 20040513
  Transmission Date: 20050107
  Serious: Yes (Death, Hospitalization, Other)
  Sender: FDA-Public Use
  Company Number: JP-MERCK-0405USA01706

PATIENT
  Age: 73 Year
  Sex: Female

DRUGS (2)
  1. AMLODIPINE BESYLATE [Concomitant]
     Route: 065
     Dates: end: 20000101
  2. PEPCID [Suspect]
     Route: 048
     Dates: end: 20000101

REACTIONS (17)
  - ACTINOMYCOSIS [None]
  - ACTINOMYCOTIC PULMONARY INFECTION [None]
  - ASPERGILLOSIS [None]
  - CHROMOSOME ABNORMALITY [None]
  - DEHYDRATION [None]
  - DRUG ERUPTION [None]
  - DRUG HYPERSENSITIVITY [None]
  - HTLV-1 ANTIBODY POSITIVE [None]
  - LYMPHOCYTE STIMULATION TEST POSITIVE [None]
  - NEPHRITIS ALLERGIC [None]
  - NOCARDIOSIS [None]
  - OPPORTUNISTIC INFECTION [None]
  - PARAPSORIASIS [None]
  - PITYRIASIS LICHENOIDES ET VARIOLIFORMIS ACUTA [None]
  - PSEUDOMONAS INFECTION [None]
  - RENAL FAILURE [None]
  - STAPHYLOCOCCAL INFECTION [None]
